FAERS Safety Report 4620044-4 (Version None)
Quarter: 2005Q1

REPORT INFORMATION
  Report Type: 
  Country: None (occurrence: None)
  Receive Date: 20050324
  Receipt Date: 20050324
  Transmission Date: 20050727
  Serious: Yes (Hospitalization)
  Sender: FDA-Public Use
  Company Number: None

PATIENT
  Sex: Male
  Weight: 90.9 kg

DRUGS (3)
  1. FLUOROURACIL [Suspect]
     Dosage: 300 MG /M2 /DAY CONTINOUS INFUSION OVER 96 M-F X 5 WEEKS
     Route: 042
     Dates: start: 20041129, end: 20041231
  2. CISPLATIN [Suspect]
     Dosage: 15 MG /M2 /DAY IV OVER 1 HOUR ON DAY 1-5
     Route: 042
     Dates: start: 20041129, end: 20041203
  3. RADIOTHERAPY [Suspect]
     Dosage: 1.8 GY/FX, 5 DAYS/WEEK, M-F, TOTAL 50.4 GY/28 FX

REACTIONS (1)
  - GUILLAIN-BARRE SYNDROME [None]
